FAERS Safety Report 5778324-5 (Version None)
Quarter: 2008Q2

REPORT INFORMATION
  Report Type: 
  Country: None (occurrence: None)
  Receive Date: 20080619
  Receipt Date: 20080609
  Transmission Date: 20081010
  Serious: Yes (Other)
  Sender: FDA-Public Use
  Company Number: US-ROCHE-546721

PATIENT
  Sex: Female
  Weight: 54.4 kg

DRUGS (6)
  1. BONIVA [Suspect]
     Indication: BONE DENSITY DECREASED
     Route: 065
     Dates: start: 20070201
  2. ARMOUR THYROID [Concomitant]
     Indication: HYPOTHYROIDISM
  3. ARMOUR THYROID [Concomitant]
  4. ZOCOR [Concomitant]
  5. 1 CONCOMITANT DRUG [Concomitant]
     Indication: GLAUCOMA
     Dosage: DRUG REPORTED AS EYE DROPS.
  6. VITAMINS NOS [Concomitant]

REACTIONS (1)
  - COLITIS ULCERATIVE [None]
